FAERS Safety Report 12205722 (Version 3)
Quarter: 2023Q1

REPORT INFORMATION
  Report Type: Spontaneous
  Country: CA (occurrence: CA)
  Receive Date: 20160323
  Receipt Date: 20230123
  Transmission Date: 20230418
  Serious: Yes (Hospitalization, Other)
  Sender: FDA-Public Use
  Company Number: CA-MYLANLABS-2016M1012355

PATIENT
  Age: 58 Year
  Sex: Female

DRUGS (18)
  1. PROPOFOL [Suspect]
     Active Substance: PROPOFOL
     Indication: Status epilepticus
     Dosage: 150 MILLIGRAM, BID, EMULSION FOR INJECTION/INFUSION
     Route: 042
  2. KETAMINE [Suspect]
     Active Substance: KETAMINE
     Indication: Anaesthesia
     Dosage: UNK
     Route: 065
  3. KETAMINE [Suspect]
     Active Substance: KETAMINE
     Indication: Status epilepticus
  4. PHENYTOIN [Suspect]
     Active Substance: PHENYTOIN
     Indication: Status epilepticus
     Dosage: UNK
     Route: 065
  5. PHENYTOIN [Suspect]
     Active Substance: PHENYTOIN
     Indication: Seizure
  6. LEVETIRACETAM [Suspect]
     Active Substance: LEVETIRACETAM
     Indication: Product used for unknown indication
     Dosage: UNK
     Route: 065
  7. VALPROIC ACID [Suspect]
     Active Substance: VALPROIC ACID
     Indication: Seizure
     Dosage: UNK
     Route: 065
  8. PHENOBARBITAL [Suspect]
     Active Substance: PHENOBARBITAL
     Indication: Status epilepticus
     Dosage: 150 MILLIGRAM, BID
     Route: 065
  9. PHENOBARBITAL [Suspect]
     Active Substance: PHENOBARBITAL
     Indication: Seizure
  10. ISOFLURANE [Suspect]
     Active Substance: ISOFLURANE
     Indication: Status epilepticus
     Dosage: UNK; INHALATION GAS
     Route: 055
  11. ISOFLURANE [Suspect]
     Active Substance: ISOFLURANE
     Dosage: UNK
     Route: 055
  12. MIDAZOLAM [Suspect]
     Active Substance: MIDAZOLAM
     Indication: Status epilepticus
     Dosage: UNK
     Route: 065
  13. METHYLPREDNISOLONE [Suspect]
     Active Substance: METHYLPREDNISOLONE
     Indication: Status epilepticus
     Dosage: 4 GRAM, TOTAL
     Route: 042
  14. METHYLPREDNISOLONE [Suspect]
     Active Substance: METHYLPREDNISOLONE
     Dosage: 4 GRAM
     Route: 042
  15. FORANE [Suspect]
     Active Substance: ISOFLURANE
     Indication: Seizure
     Dosage: UNK
     Route: 055
  16. KEPPRA [Suspect]
     Active Substance: LEVETIRACETAM
     Indication: Status epilepticus
     Dosage: UNK
     Route: 065
  17. PIPERACILLIN AND TAZOBACTAM [Concomitant]
     Active Substance: PIPERACILLIN SODIUM\TAZOBACTAM SODIUM
     Indication: Product used for unknown indication
     Dosage: UNK
     Route: 065
  18. TEGRETOL [Concomitant]
     Active Substance: CARBAMAZEPINE
     Indication: Product used for unknown indication
     Dosage: UNK
     Route: 065

REACTIONS (19)
  - Intestinal infarction [Unknown]
  - Large intestine perforation [Unknown]
  - Intestinal ischaemia [Recovered/Resolved]
  - Abdominal distension [Recovered/Resolved]
  - Pneumatosis [Recovered/Resolved]
  - Necrosis ischaemic [Recovered/Resolved]
  - Intestinal perforation [Recovered/Resolved]
  - Cardiomegaly [Recovered/Resolved]
  - Left ventricular hypertrophy [Recovered/Resolved]
  - Vomiting [Recovered/Resolved]
  - Intra-abdominal pressure increased [Recovered/Resolved]
  - Systemic inflammatory response syndrome [Recovered/Resolved]
  - Hypotension [Recovered/Resolved]
  - Abscess [Recovered/Resolved]
  - Ultrasound ovary abnormal [Recovered/Resolved]
  - Carbohydrate antigen 125 increased [Recovered/Resolved]
  - Maternal exposure during pregnancy [Unknown]
  - Off label use [Unknown]
  - Drug ineffective for unapproved indication [Unknown]
